FAERS Safety Report 5503590-0 (Version None)
Quarter: 2007Q4

REPORT INFORMATION
  Report Type: 
  Country: None (occurrence: None)
  Receive Date: 20071029
  Receipt Date: 20071015
  Transmission Date: 20080405
  Serious: Yes (Death, Life-Threatening)
  Sender: FDA-Public Use
  Company Number: 2007P1000677

PATIENT
  Age: 35 Year
  Sex: Male

DRUGS (5)
  1. BUSULFAN (BUSULFAN) [Suspect]
     Indication: STEM CELL TRANSPLANT
     Dosage: 34 ML; QD; IV
     Route: 042
     Dates: start: 20070501, end: 20070504
  2. FLUDARABINE PHOSPHATE [Concomitant]
  3. VALPROATE SODIUM [Concomitant]
  4. CYCLOSPORINE [Concomitant]
  5. NEUPOGEN [Concomitant]

REACTIONS (7)
  - CORD BLOOD TRANSPLANT THERAPY [None]
  - ENTEROCOCCAL SEPSIS [None]
  - HYPERKALAEMIA [None]
  - RENAL FAILURE [None]
  - STENOTROPHOMONAS SEPSIS [None]
  - STOMATITIS [None]
  - VENTRICULAR FIBRILLATION [None]
